FAERS Safety Report 18323361 (Version 2)
Quarter: 2022Q2

REPORT INFORMATION
  Report Type: Spontaneous
  Country: NL (occurrence: None)
  Receive Date: 20200929
  Receipt Date: 20220616
  Transmission Date: 20220721
  Serious: Yes (Other)
  Sender: FDA-Public Use
  Company Number: NL-ROCHE-2682975

PATIENT
  Age: 59 Year
  Sex: Female

DRUGS (9)
  1. AVASTIN [Suspect]
     Active Substance: BEVACIZUMAB
     Indication: Ovarian cancer
     Dosage: TOTAL OF 17 CYCLES
     Route: 042
     Dates: start: 20181108
  2. CARBOPLATIN [Concomitant]
     Active Substance: CARBOPLATIN
     Indication: Ovarian cancer
     Dosage: 3 CYCLES
     Dates: start: 20181011, end: 20181206
  3. CARBOPLATIN [Concomitant]
     Active Substance: CARBOPLATIN
     Dosage: 5 CYCLES
     Dates: start: 20191210, end: 20200324
  4. CARBOPLATIN [Concomitant]
     Active Substance: CARBOPLATIN
     Dosage: 3 CYCLES
     Dates: start: 20180625, end: 20180807
  5. PACLITAXEL [Concomitant]
     Active Substance: PACLITAXEL
     Indication: Ovarian cancer
     Dosage: 3 CYCLES
     Dates: start: 20181011, end: 20181206
  6. PACLITAXEL [Concomitant]
     Active Substance: PACLITAXEL
     Dosage: 3 CYCLES
     Dates: start: 20180625, end: 20180807
  7. DOXORUBICIN [Concomitant]
     Active Substance: DOXORUBICIN
     Indication: Ovarian cancer
     Dosage: 5 CYCLES
     Dates: start: 20191210, end: 20200324
  8. NIRAPARIB [Concomitant]
     Active Substance: NIRAPARIB
     Indication: Ovarian cancer
     Dates: start: 20200603
  9. NIRAPARIB [Concomitant]
     Active Substance: NIRAPARIB
     Dosage: REDUCED TO 100 MG

REACTIONS (6)
  - Metastatic neoplasm [Unknown]
  - Thrombocytopenia [Unknown]
  - Pleural effusion [Unknown]
  - Lung disorder [Unknown]
  - Peritoneal disorder [Unknown]
  - Pulmonary mass [Unknown]

NARRATIVE: CASE EVENT DATE: 20191115
